FAERS Safety Report 9499285 (Version 3)
Quarter: 2015Q2

REPORT INFORMATION
  Report Type: Spontaneous
  Country: US (occurrence: US)
  Receive Date: 20130905
  Receipt Date: 20150605
  Transmission Date: 20150821
  Serious: No
  Sender: FDA-Public Use
  Company Number: US-BIOGENIDEC-2013BI081225

PATIENT
  Age: 65 Year
  Sex: Female

DRUGS (9)
  1. PROZAC [Concomitant]
     Active Substance: FLUOXETINE HYDROCHLORIDE
  2. TYSABRI [Suspect]
     Active Substance: NATALIZUMAB
     Indication: MULTIPLE SCLEROSIS
     Route: 042
     Dates: start: 20061212, end: 20140327
  3. TYSABRI [Suspect]
     Active Substance: NATALIZUMAB
     Indication: MULTIPLE SCLEROSIS
     Route: 042
     Dates: start: 20061212
  4. CLONAZEPAM. [Concomitant]
     Active Substance: CLONAZEPAM
  5. VITAMIN B50 [Concomitant]
  6. PSYLLIUM [Concomitant]
     Active Substance: PLANTAGO SEED
     Indication: BLOOD CHOLESTEROL
  7. CRESTOR [Concomitant]
     Active Substance: ROSUVASTATIN CALCIUM
     Indication: BLOOD CHOLESTEROL
  8. OMEGA BASED SUPPLEMENTS [Concomitant]
     Indication: BLOOD CHOLESTEROL
  9. GABAPENTIN. [Concomitant]
     Active Substance: GABAPENTIN

REACTIONS (7)
  - Heart rate decreased [Recovered/Resolved]
  - Injury [Recovered/Resolved]
  - Fatigue [Not Recovered/Not Resolved]
  - Loss of consciousness [Recovered/Resolved]
  - Cognitive disorder [Not Recovered/Not Resolved]
  - Headache [Recovered/Resolved]
  - Syncope [Recovered/Resolved]

NARRATIVE: CASE EVENT DATE: 2013
